FAERS Safety Report 4811030-X (Version None)
Quarter: 2005Q4

REPORT INFORMATION
  Report Type: 
  Country: None (occurrence: None)
  Receive Date: 20051027
  Receipt Date: 20051021
  Transmission Date: 20060501
  Serious: Yes (Hospitalization, Other)
  Sender: FDA-Public Use
  Company Number: GB-JNJFOC-20051004578

PATIENT
  Sex: Male
  Weight: 90 kg

DRUGS (7)
  1. REMICADE [Suspect]
     Indication: RHEUMATOID ARTHRITIS
     Route: 042
  2. DIGOXIN [Concomitant]
     Route: 065
  3. OMEPRAZOLE [Concomitant]
     Route: 065
  4. WARFARIN [Concomitant]
     Route: 065
  5. AZATHIOPRINE [Concomitant]
     Route: 065
  6. PREDNISOLONE [Concomitant]
     Route: 065
  7. RANIPRIL [Concomitant]
     Route: 065

REACTIONS (1)
  - LISTERIOSIS [None]
